FAERS Safety Report 8899922 (Version 1)
Quarter: 2012Q4

REPORT INFORMATION
  Report Type: 
  Country: US (occurrence: US)
  Receive Date: 20121109
  Receipt Date: 20121109
  Transmission Date: 20130627
  Serious: Yes (Other)
  Sender: FDA-Public Use
  Company Number: PHEH2012US021944

PATIENT
  Sex: Male

DRUGS (2)
  1. EXJADE [Suspect]
     Indication: IRON METABOLISM DISORDER
     Dosage: 2000 mg, once daily
     Route: 048
     Dates: start: 20121016
  2. CYCLOSPORINE [Concomitant]

REACTIONS (1)
  - Blood glucose decreased [Unknown]
